FAERS Safety Report 19198257 (Version 1)
Quarter: 2021Q2

REPORT INFORMATION
  Report Type: Spontaneous
  Country: US (occurrence: US)
  Receive Date: 20210430
  Receipt Date: 20210430
  Transmission Date: 20210717
  Serious: Yes (Other)
  Sender: FDA-Public Use
  Company Number: US-TEVA-2021-US-1904668

PATIENT
  Age: 64 Year
  Sex: Male

DRUGS (3)
  1. ETOPOSIDE. [Concomitant]
     Active Substance: ETOPOSIDE
     Indication: SEMINOMA
     Route: 065
  2. CISPLATIN. [Concomitant]
     Active Substance: CISPLATIN
     Indication: SEMINOMA
     Route: 065
  3. BLEOMYCIN [Suspect]
     Active Substance: BLEOMYCIN SULFATE
     Indication: SEMINOMA
     Route: 065

REACTIONS (4)
  - Pulmonary toxicity [Not Recovered/Not Resolved]
  - Flagellate dermatitis [Recovered/Resolved with Sequelae]
  - Toxicity to various agents [Recovering/Resolving]
  - Nail pigmentation [Not Recovered/Not Resolved]
